FAERS Safety Report 7476509-3 (Version None)
Quarter: 2011Q2

REPORT INFORMATION
  Report Type: 
  Country: None (occurrence: None)
  Receive Date: 20110512
  Receipt Date: 20110505
  Transmission Date: 20111010
  Serious: Yes (Hospitalization)
  Sender: FDA-Public Use
  Company Number: US-B.I. PHARMACEUTICALS,INC./RIDGEFIELD-2011-BP-02714BP

PATIENT
  Age: 69 Year
  Sex: Female
  Weight: 69.4 kg

DRUGS (2)
  1. DILTIAZEM [Concomitant]
  2. PRADAXA [Suspect]
     Indication: ATRIAL FIBRILLATION

REACTIONS (2)
  - GASTROINTESTINAL HAEMORRHAGE [None]
  - ANAEMIA [None]
